FAERS Safety Report 4567801-0 (Version None)
Quarter: 2005Q1

REPORT INFORMATION
  Report Type: 
  Country: None (occurrence: None)
  Receive Date: 20050128
  Receipt Date: 20050113
  Transmission Date: 20050727
  Serious: Yes (Death)
  Sender: FDA-Public Use
  Company Number: 2004S1003282

PATIENT
  Age: 83 Year
  Sex: Female
  Weight: 70.7611 kg

DRUGS (14)
  1. CLOZAPINE [Suspect]
     Indication: SCHIZOPHRENIA
     Dosage: 125 MG TID, ORAL
     Route: 048
     Dates: start: 20040902, end: 20040920
  2. MORPHINE [Concomitant]
  3. ATROPINE OPHTHALMIC [Concomitant]
  4. FENTANYL [Concomitant]
  5. SORBITOL [Concomitant]
  6. LEVOTHYROXINE [Concomitant]
  7. ATENOLOL [Concomitant]
  8. MIRTAZAPINE [Concomitant]
  9. DONEPEZIL HCL [Concomitant]
  10. GATIFLOXACIN [Concomitant]
  11. DOCUSATE SODIUM [Concomitant]
  12. ACETAMINOPHEN [Concomitant]
  13. LACTULOSE [Concomitant]
  14. MULTI-VITAMIN [Concomitant]

REACTIONS (8)
  - ABNORMAL BEHAVIOUR [None]
  - AGGRESSION [None]
  - AREFLEXIA [None]
  - COMA [None]
  - DYSPNOEA [None]
  - LETHARGY [None]
  - ORAL INTAKE REDUCED [None]
  - PULSE ABSENT [None]
